FAERS Safety Report 22355782 (Version 1)
Quarter: 2023Q2

REPORT INFORMATION
  Report Type: Spontaneous
  Country: ES (occurrence: ES)
  Receive Date: 20230523
  Receipt Date: 20230523
  Transmission Date: 20230722
  Serious: Yes (Other)
  Sender: FDA-Public Use
  Company Number: ES-SUN PHARMACEUTICAL INDUSTRIES LTD-2023RR-389629

PATIENT
  Age: 49 Year
  Sex: Male

DRUGS (5)
  1. TRABECTEDIN [Suspect]
     Active Substance: TRABECTEDIN
     Indication: Sarcoma
     Dosage: 1.5 MILLIGRAM PER CUBIC METRE, DAILY, EVERY 21 DAYS
     Route: 065
  2. TRABECTEDIN [Suspect]
     Active Substance: TRABECTEDIN
     Dosage: 2.6 MILLIGRAM
     Route: 065
  3. TRABECTEDIN [Suspect]
     Active Substance: TRABECTEDIN
     Dosage: 1.1 MILLIGRAM PER CUBIC METRE
     Route: 065
     Dates: start: 202010
  4. DOXORUBICIN [Interacting]
     Active Substance: DOXORUBICIN
     Indication: Leiomyosarcoma
     Dosage: 25 MILLIGRAM PER CUBIC METRE, DAILY, ON DAYS 1, 2 AND 3 IN 21-DAY CYCLES
  5. DACARBAZINE [Concomitant]
     Active Substance: DACARBAZINE
     Indication: Sarcoma
     Dosage: 250 MILLIGRAM PER CUBIC METRE, DAILY, ON DAYS 1, 2 AND 3 IN 21-DAY CYCLES
     Route: 065

REACTIONS (6)
  - Therapeutic product effect incomplete [Unknown]
  - Neutropenia [Recovering/Resolving]
  - Nausea [Recovering/Resolving]
  - Diarrhoea [Recovering/Resolving]
  - Disease progression [Unknown]
  - Hepatic enzyme abnormal [Recovering/Resolving]

NARRATIVE: CASE EVENT DATE: 20170601
